FAERS Safety Report 22233285 (Version 1)
Quarter: 2023Q2

REPORT INFORMATION
  Report Type: Spontaneous
  Country: CA (occurrence: CA)
  Receive Date: 20230420
  Receipt Date: 20230420
  Transmission Date: 20230721
  Serious: Yes (Other)
  Sender: FDA-Public Use
  Company Number: CA-BAYER-2023A051669

PATIENT
  Age: 17 Year
  Sex: Female

DRUGS (1)
  1. YASMIN [Suspect]
     Active Substance: DROSPIRENONE\ETHINYL ESTRADIOL
     Indication: Acne
     Dosage: UNK
     Route: 048
     Dates: start: 20070329, end: 20110707

REACTIONS (3)
  - Cerebrovascular accident [None]
  - Hemiparaesthesia [Recovered/Resolved]
  - Intermenstrual bleeding [None]

NARRATIVE: CASE EVENT DATE: 20100729
